FAERS Safety Report 13526531 (Version 1)
Quarter: 2017Q2

REPORT INFORMATION
  Report Type: Spontaneous
  Country: US (occurrence: US)
  Receive Date: 20170509
  Receipt Date: 20170509
  Transmission Date: 20170830
  Serious: No
  Sender: FDA-Public Use
  Company Number: US-TEVA-724100ACC

PATIENT
  Sex: Female

DRUGS (1)
  1. PERMELTN-A [Suspect]
     Active Substance: PERMETHRIN

REACTIONS (1)
  - Drug ineffective [Unknown]
